FAERS Safety Report 22027536 (Version 1)
Quarter: 2023Q1

REPORT INFORMATION
  Report Type: Spontaneous
  Country: CN (occurrence: CN)
  Receive Date: 20230223
  Receipt Date: 20230223
  Transmission Date: 20230417
  Serious: Yes (Other)
  Sender: FDA-Public Use
  Company Number: CN-HALEON-CNCH2023APC008012

PATIENT

DRUGS (8)
  1. IBUPROFEN [Suspect]
     Active Substance: IBUPROFEN
     Indication: Nausea
     Dosage: 1 DF, QD
     Route: 048
     Dates: start: 20221222, end: 20221223
  2. IBUPROFEN [Suspect]
     Active Substance: IBUPROFEN
     Indication: Vomiting
  3. IBUPROFEN [Suspect]
     Active Substance: IBUPROFEN
     Indication: Headache
  4. IBUPROFEN [Suspect]
     Active Substance: IBUPROFEN
     Indication: Back pain
  5. IBUPROFEN [Suspect]
     Active Substance: IBUPROFEN
     Indication: Abdominal pain
  6. IBUPROFEN [Suspect]
     Active Substance: IBUPROFEN
     Indication: Asthenia
  7. IBUPROFEN [Suspect]
     Active Substance: IBUPROFEN
     Indication: Decreased appetite
  8. IBUPROFEN [Suspect]
     Active Substance: IBUPROFEN
     Indication: Oropharyngeal discomfort

REACTIONS (3)
  - Drug-induced liver injury [Recovering/Resolving]
  - Hepatic function abnormal [Recovering/Resolving]
  - Transaminases increased [Recovering/Resolving]

NARRATIVE: CASE EVENT DATE: 20221222
